FAERS Safety Report 7214387 (Version 2)
Quarter: 2013Q2

REPORT INFORMATION
  Report Type: Report from Study
  Country: NL (occurrence: NL)
  Receive Date: 20091214
  Receipt Date: 20130617
  Transmission Date: 20140414
  Serious: Yes (Hospitalization)
  Sender: FDA-Public Use
  Company Number: NL-JNJFOC-20091201895

PATIENT
  Age: 44 Year
  Sex: Male
  Weight: 68 kg

DRUGS (13)
  1. REMICADE [Suspect]
     Indication: CROHN^S DISEASE
     Route: 042
     Dates: start: 20090427
  2. REMICADE [Suspect]
     Indication: CROHN^S DISEASE
     Route: 042
     Dates: start: 20090720
  3. REMICADE [Suspect]
     Indication: CROHN^S DISEASE
     Route: 042
  4. REMICADE [Suspect]
     Indication: CROHN^S DISEASE
     Route: 042
     Dates: start: 20090608
  5. NEXIUM [Concomitant]
     Indication: DYSPEPSIA
     Route: 065
  6. NEXIUM [Concomitant]
     Indication: DYSPEPSIA
     Route: 065
     Dates: start: 20030703
  7. NEXIUM [Concomitant]
     Indication: CROHN^S DISEASE
     Route: 065
     Dates: start: 20030703
  8. NEXIUM [Concomitant]
     Indication: CROHN^S DISEASE
     Route: 065
  9. PENTASA [Concomitant]
     Indication: CROHN^S DISEASE
     Dates: start: 199602
  10. ENTOCORT [Concomitant]
     Indication: CROHN^S DISEASE
     Route: 065
     Dates: start: 199602
  11. ENTOCORT [Concomitant]
     Indication: CROHN^S DISEASE
     Route: 065
  12. DUSPATAL NOS [Concomitant]
     Indication: CROHN^S DISEASE
  13. PETHIDINE HCL [Concomitant]
     Indication: CROHN^S DISEASE
     Route: 065
     Dates: start: 200911

REACTIONS (2)
  - Ileal stenosis [Recovered/Resolved]
  - Diarrhoea [Unknown]
